FAERS Safety Report 8225334-4 (Version None)
Quarter: 2012Q1

REPORT INFORMATION
  Report Type: 
  Country: None (occurrence: None)
  Receive Date: 20120321
  Receipt Date: 20120314
  Transmission Date: 20120608
  Serious: Yes (Hospitalization)
  Sender: FDA-Public Use
  Company Number: JP-GLAXOSMITHKLINE-B0774551A

PATIENT
  Sex: Female

DRUGS (6)
  1. LAMICTAL [Suspect]
     Dosage: 25MG PER DAY
     Route: 048
     Dates: start: 20111129, end: 20111215
  2. ZOLPIDEM [Concomitant]
     Indication: INSOMNIA
     Dosage: 10MG PER DAY
     Route: 048
     Dates: start: 20101112, end: 20111222
  3. LAMICTAL [Suspect]
     Dosage: 50MG PER DAY
     Route: 048
     Dates: start: 20111216, end: 20111221
  4. VALPROATE SODIUM [Suspect]
     Indication: BIPOLAR I DISORDER
     Route: 048
     Dates: end: 20111222
  5. SEPAZON [Concomitant]
     Indication: ANXIETY
     Route: 048
     Dates: end: 20111222
  6. LAMICTAL [Suspect]
     Indication: BIPOLAR I DISORDER
     Dosage: 25MG ALTERNATE DAYS
     Route: 048
     Dates: start: 20111115, end: 20111128

REACTIONS (9)
  - VULVAL DISORDER [None]
  - ERYTHEMA OF EYELID [None]
  - LIP EROSION [None]
  - ORAL MUCOSA EROSION [None]
  - STEVENS-JOHNSON SYNDROME [None]
  - DRUG ERUPTION [None]
  - RASH [None]
  - OCULAR HYPERAEMIA [None]
  - GENERALISED ERYTHEMA [None]
